FAERS Safety Report 9071816 (Version 1)
Quarter: 2013Q1

REPORT INFORMATION
  Report Type: Report from Study
  Country: NL (occurrence: NL)
  Receive Date: 20130129
  Receipt Date: 20130129
  Transmission Date: 20140127
  Serious: Yes (Death, Hospitalization)
  Sender: FDA-Public Use
  Company Number: NL-SANOFI-AVENTIS-2013SA005119

PATIENT
  Age: 68 Year
  Sex: Male
  Weight: 97 kg

DRUGS (4)
  1. DOCETAXEL [Suspect]
     Indication: GASTRIC CANCER
     Route: 042
     Dates: start: 20110414
  2. BEVACIZUMAB [Suspect]
     Indication: GASTRIC CANCER
     Route: 042
     Dates: start: 20110414
  3. OXALIPLATIN [Suspect]
     Indication: GASTRIC CANCER
     Route: 042
     Dates: start: 20110414
  4. CAPECITABINE [Suspect]
     Indication: GASTRIC CANCER
     Route: 048
     Dates: start: 20110414

REACTIONS (4)
  - Dehydration [Unknown]
  - Fatigue [Fatal]
  - Jaundice [Fatal]
  - Bile duct obstruction [Unknown]
